FAERS Safety Report 7421248 (Version 13)
Quarter: 2015Q3

REPORT INFORMATION
  Report Type: Spontaneous
  Country: US (occurrence: US)
  Receive Date: 20100616
  Receipt Date: 20150911
  Transmission Date: 20151125
  Serious: Yes (Hospitalization, Other)
  Sender: FDA-Public Use
  Company Number: US-ASTRAZENECA-2010SE06150

PATIENT
  Age: 66 Year
  Sex: Female
  Weight: 55.3 kg

DRUGS (9)
  1. NEXIUM [Suspect]
     Active Substance: ESOMEPRAZOLE MAGNESIUM
     Route: 048
  2. NEXIUM [Suspect]
     Active Substance: ESOMEPRAZOLE MAGNESIUM
     Route: 048
  3. NEXIUM [Suspect]
     Active Substance: ESOMEPRAZOLE MAGNESIUM
     Route: 048
  4. NEXIUM [Suspect]
     Active Substance: ESOMEPRAZOLE MAGNESIUM
     Route: 048
  5. NEXIUM [Suspect]
     Active Substance: ESOMEPRAZOLE MAGNESIUM
     Route: 048
  6. ATACAND [Suspect]
     Active Substance: CANDESARTAN CILEXETIL
     Route: 048
  7. ATACAND [Suspect]
     Active Substance: CANDESARTAN CILEXETIL
     Route: 048
  8. CRESTOR [Suspect]
     Active Substance: ROSUVASTATIN CALCIUM
     Route: 048
  9. CRESTOR [Suspect]
     Active Substance: ROSUVASTATIN CALCIUM
     Route: 048

REACTIONS (33)
  - Fall [Unknown]
  - Gastric disorder [Unknown]
  - Upper limb fracture [Unknown]
  - Dysgraphia [Unknown]
  - Abdominal discomfort [Unknown]
  - Intentional product misuse [Unknown]
  - Hip fracture [Unknown]
  - Adverse event [Unknown]
  - Thyroid disorder [Unknown]
  - Fatigue [Unknown]
  - Hypersensitivity [Unknown]
  - Drug administration error [Unknown]
  - Off label use [Unknown]
  - Skin cancer [Unknown]
  - Hypertension [Unknown]
  - Intervertebral disc protrusion [Unknown]
  - Osteoporosis [Unknown]
  - Back injury [Unknown]
  - Spinal disorder [Unknown]
  - Sleep disorder due to general medical condition, insomnia type [Unknown]
  - Flatulence [Unknown]
  - Weight decreased [Unknown]
  - Malaise [Unknown]
  - Dyspnoea [Unknown]
  - Muscle spasms [Unknown]
  - Upper respiratory tract infection [Unknown]
  - Pain [Unknown]
  - Gastrointestinal disorder [Not Recovered/Not Resolved]
  - Drug dose omission [Not Recovered/Not Resolved]
  - Multiple fractures [Unknown]
  - Laryngitis [Unknown]
  - Palpitations [Unknown]
  - Dizziness [Unknown]

NARRATIVE: CASE EVENT DATE: 2000
